FAERS Safety Report 18930257 (Version 2)
Quarter: 2021Q1

REPORT INFORMATION
  Report Type: Report from Study
  Country: US (occurrence: US)
  Receive Date: 20210223
  Receipt Date: 20210305
  Transmission Date: 20210420
  Serious: Yes (Hospitalization)
  Sender: FDA-Public Use
  Company Number: NVSC2021US036570

PATIENT
  Age: 55 Year
  Sex: Female

DRUGS (1)
  1. ENTRESTO [Suspect]
     Active Substance: SACUBITRIL\VALSARTAN
     Indication: PRODUCT USED FOR UNKNOWN INDICATION
     Dosage: UNK UNK, BID
     Route: 048

REACTIONS (7)
  - Cardiac disorder [Unknown]
  - Arthropathy [Unknown]
  - Cough [Unknown]
  - Throat clearing [Unknown]
  - Rhinorrhoea [Unknown]
  - Atrial fibrillation [Unknown]
  - Decreased activity [Unknown]
